FAERS Safety Report 4319409-X (Version None)
Quarter: 2004Q1

REPORT INFORMATION
  Report Type: 
  Country: None (occurrence: None)
  Receive Date: 20040318
  Receipt Date: 20040318
  Transmission Date: 20041129
  Serious: No
  Sender: FDA-Public Use
  Company Number: None

PATIENT
  Age: 37 Year
  Sex: Female
  Weight: 74.8435 kg

DRUGS (4)
  1. CRESTOR [Suspect]
     Indication: RENAL DISORDER
     Dosage: ONE TABLET BEDTIME ORAL
     Route: 048
     Dates: start: 20040202, end: 20040312
  2. CRESTOR [Suspect]
     Indication: RHABDOMYOLYSIS
     Dosage: ONE TABLET BEDTIME ORAL
     Route: 048
     Dates: start: 20040202, end: 20040312
  3. DELESTROGEN [Concomitant]
  4. ACIPHEX [Concomitant]

REACTIONS (20)
  - ANOREXIA [None]
  - ANXIETY [None]
  - ASTHENIA [None]
  - BACK PAIN [None]
  - BURNING SENSATION [None]
  - CHROMATURIA [None]
  - DIZZINESS [None]
  - FATIGUE [None]
  - HEADACHE [None]
  - MUSCLE CRAMP [None]
  - MUSCLE DISORDER [None]
  - MUSCLE SPASMS [None]
  - MUSCLE TIGHTNESS [None]
  - MUSCULOSKELETAL STIFFNESS [None]
  - MYALGIA [None]
  - NAUSEA [None]
  - OEDEMA PERIPHERAL [None]
  - PAIN [None]
  - SWELLING [None]
  - URINE ANALYSIS ABNORMAL [None]
